FAERS Safety Report 9042680 (Version 1)
Quarter: 2013Q1

REPORT INFORMATION
  Report Type: Report from Study
  Country: US (occurrence: US)
  Receive Date: 20130129
  Receipt Date: 20130129
  Transmission Date: 20140127
  Serious: No
  Sender: FDA-Public Use
  Company Number: US-ABBOTT-12P-163-0905666-00

PATIENT
  Age: 56 Year
  Sex: Female

DRUGS (6)
  1. HUMIRA 40 MG/0.8 ML PEN [Suspect]
     Indication: PSORIATIC ARTHROPATHY
  2. LABETALOL [Concomitant]
     Indication: BLOOD PRESSURE INCREASED
  3. DILTIAZEM HCL [Concomitant]
     Indication: HYPERTENSION
     Dosage: 360 MG DAILY
  4. LASIX [Concomitant]
     Indication: HYPERTENSION
     Dosage: 40 MG DAILY
  5. FOLIC ACID [Concomitant]
     Indication: PRODUCT USED FOR UNKNOWN INDICATION
     Dosage: 1 MG DAILY
  6. METHOTREXATE [Concomitant]
     Indication: PRODUCT USED FOR UNKNOWN INDICATION
     Dosage: 2.5 MG X 6 TABS WEEKLY

REACTIONS (2)
  - Injection site haemorrhage [Not Recovered/Not Resolved]
  - Injection site bruising [Not Recovered/Not Resolved]
